FAERS Safety Report 8845161 (Version 1)
Quarter: 2012Q4

REPORT INFORMATION
  Report Type: Spontaneous
  Country: IT (occurrence: None)
  Receive Date: 20121015
  Receipt Date: 20121015
  Transmission Date: 20130627
  Serious: Yes (Hospitalization)
  Sender: FDA-Public Use
  Company Number: 1442400

PATIENT
  Age: 68 Year
  Sex: Female
  Weight: 54 kg

DRUGS (1)
  1. OXALIPLATIN [Suspect]
     Indication: COLON CANCER
     Dosage: 220 MG MILLIGRAM(S), CYCLICAL, INTRAVENOUS
     Route: 042
     Dates: start: 20120523, end: 20120928

REACTIONS (3)
  - Bronchostenosis [None]
  - Cyanosis [None]
  - Dyspnoea [None]
